FAERS Safety Report 23320691 (Version 2)
Quarter: 2023Q4

REPORT INFORMATION
  Report Type: Spontaneous
  Country: CA (occurrence: CA)
  Receive Date: 20231220
  Receipt Date: 20231222
  Transmission Date: 20240109
  Serious: Yes (Other)
  Sender: FDA-Public Use
  Company Number: CA-PFIZER INC-202300444233

PATIENT
  Age: 17 Year
  Sex: Male

DRUGS (1)
  1. ABRILADA [Suspect]
     Active Substance: ADALIMUMAB-AFZB
     Indication: Hidradenitis
     Dosage: 1 DF, WEEK0: 80MG THEN 40 MG EVERY OTHER WEEK STARTING AT WEEK 1
     Route: 058
     Dates: start: 20231124

REACTIONS (1)
  - Pilonidal disease [Recovering/Resolving]

NARRATIVE: CASE EVENT DATE: 20230101
